FAERS Safety Report 4615391-6 (Version None)
Quarter: 2005Q1

REPORT INFORMATION
  Report Type: 
  Country: None (occurrence: None)
  Receive Date: 20050317
  Receipt Date: 20050301
  Transmission Date: 20050727
  Serious: Yes (Hospitalization)
  Sender: FDA-Public Use
  Company Number: DSA_26039_2005

PATIENT
  Age: 26 Year
  Sex: Female

DRUGS (3)
  1. TAVOR [Suspect]
     Dosage: 2 MG PO
     Route: 048
     Dates: start: 20050215, end: 20050215
  2. PERAZINE [Suspect]
     Dosage: 750 MG PO
     Route: 048
     Dates: start: 20050215, end: 20050215
  3. RISPERDAL [Suspect]
     Dosage: 30 MG PO
     Route: 048
     Dates: start: 20050215, end: 20050215

REACTIONS (12)
  - ASPARTATE AMINOTRANSFERASE INCREASED [None]
  - BLOOD GLUCOSE INCREASED [None]
  - BLOOD POTASSIUM DECREASED [None]
  - DIARRHOEA [None]
  - DIZZINESS [None]
  - DRY MOUTH [None]
  - EYE MOVEMENT DISORDER [None]
  - INTENTIONAL MISUSE [None]
  - MUSCULOSKELETAL STIFFNESS [None]
  - NAUSEA [None]
  - TACHYCARDIA [None]
  - TRANSAMINASES INCREASED [None]
